FAERS Safety Report 7389924-3 (Version None)
Quarter: 2011Q1

REPORT INFORMATION
  Report Type: 
  Country: None (occurrence: None)
  Receive Date: 20110325
  Receipt Date: 20110311
  Transmission Date: 20110831
  Serious: Yes (Other)
  Sender: FDA-Public Use
  Company Number: 2010002858

PATIENT
  Age: 47 Year
  Sex: Male
  Weight: 93.3 kg

DRUGS (3)
  1. GDC-0449 [Suspect]
     Indication: EWING'S SARCOMA
     Dosage: (150 MG, QD PER 56 DAY
     Dates: start: 20100629, end: 20100713
  2. GEMCITABINE [Suspect]
     Indication: EWING'S SARCOMA
     Dosage: (750 MG/M2, DAY 1, 8, 15, 22,29, 36, 43 (56/D CYCLE)), INTRAVENOUS
     Route: 042
     Dates: start: 20100629, end: 20100706
  3. ERLOTINIB (ERLOTINIB) (TABLET) (ERLOTINIB) [Suspect]
     Indication: EWING'S SARCOMA
     Dosage: (75 MG, QD) , ORAL
     Route: 048
     Dates: start: 20100629, end: 20100713

REACTIONS (6)
  - WHITE BLOOD CELL COUNT DECREASED [None]
  - RASH PRURITIC [None]
  - RASH ERYTHEMATOUS [None]
  - NEUTROPHIL COUNT DECREASED [None]
  - PLATELET COUNT DECREASED [None]
  - EPISTAXIS [None]
